FAERS Safety Report 19107107 (Version 2)
Quarter: 2023Q4

REPORT INFORMATION
  Report Type: Spontaneous
  Country: IT (occurrence: IT)
  Receive Date: 20210408
  Receipt Date: 20231123
  Transmission Date: 20240109
  Serious: Yes (Death, Other)
  Sender: FDA-Public Use
  Company Number: IT-EMA-DD-20180830-PAGRAHARIP-112351

PATIENT

DRUGS (13)
  1. MELPHALAN [Suspect]
     Active Substance: MELPHALAN
     Indication: Surgical preconditioning
     Dosage: 140 MILLIGRAM/SQ. METER, ONCE A DAY (ON DAY - 1 ; CYCLICAL)
     Route: 065
  2. MELPHALAN [Suspect]
     Active Substance: MELPHALAN
     Indication: Non-Hodgkin^s lymphoma refractory
     Dosage: 140 MILLIGRAM/SQ. METER, ONCE A DAY (ON DAY - 1 ; CYCLICAL)
     Route: 065
  3. ZEVALIN [Suspect]
     Active Substance: IBRITUMOMAB TIUXETAN
     Indication: Surgical preconditioning
     Dosage: UNK, WITH A MAXIMUM TOTAL DOSE OF 32 MCI
     Route: 065
  4. ZEVALIN [Suspect]
     Active Substance: IBRITUMOMAB TIUXETAN
     Indication: Non-Hodgkin^s lymphoma refractory
     Dosage: UNK, WITH A MAXIMUM TOTAL DOSE OF 0.4 MCI
     Route: 065
  5. RITUXIMAB [Suspect]
     Active Substance: RITUXIMAB
     Indication: Follicular lymphoma
     Dosage: 250 MILLIGRAM/KILOGRAM (ON DAY 21)
     Route: 065
  6. RITUXIMAB [Suspect]
     Active Substance: RITUXIMAB
     Dosage: 250 MILLIGRAM/KILOGRAM (ON DAY 21)
     Route: 065
  7. CARMUSTINE [Suspect]
     Active Substance: CARMUSTINE
     Indication: Surgical preconditioning
     Dosage: 300 MILLIGRAM/SQ. METER (ON DAY 6)
     Route: 065
  8. CARMUSTINE [Suspect]
     Active Substance: CARMUSTINE
     Indication: Non-Hodgkin^s lymphoma refractory
     Dosage: 300 MILLIGRAM/SQ. METER (ON DAY 6)
     Route: 065
  9. ETOPOSIDE [Suspect]
     Active Substance: ETOPOSIDE
     Indication: Surgical preconditioning
     Dosage: 200 MILLIGRAM/SQ. METER (ON DAYS - 5 TO - 2 CYCLIC)
     Route: 065
  10. ETOPOSIDE [Suspect]
     Active Substance: ETOPOSIDE
     Indication: Non-Hodgkin^s lymphoma refractory
     Dosage: 200 MILLIGRAM/SQ. METER (ON DAYS - 5 TO - 2 CYCLIC)
     Route: 065
  11. CYTARABINE [Suspect]
     Active Substance: CYTARABINE
     Indication: Surgical preconditioning
     Dosage: 400 MILLIGRAM/SQ. METER (ON DAY 5 TO DAY 2)
     Route: 065
  12. CYTARABINE [Suspect]
     Active Substance: CYTARABINE
     Indication: Non-Hodgkin^s lymphoma refractory
     Dosage: 400 MILLIGRAM/SQ. METER  (200 MG/M2, UNK, TWICE A DAY ON DAYS - 5 TO - 2 ; CYCLIC)
     Route: 065
  13. GRANULOCYTE COLONY-STIMULATING FACTOR NOS [Concomitant]
     Active Substance: GRANULOCYTE COLONY-STIMULATING FACTOR NOS
     Indication: Product used for unknown indication
     Dosage: 5 MICROGRAM/KILOGRAM, ONCE A DAY
     Route: 065

REACTIONS (4)
  - Progressive multifocal leukoencephalopathy [Fatal]
  - JC virus infection [Fatal]
  - Follicular lymphoma [Unknown]
  - Myelodysplastic syndrome with excess blasts [Unknown]
